FAERS Safety Report 4707038-5 (Version None)
Quarter: 2005Q3

REPORT INFORMATION
  Report Type: 
  Country: None (occurrence: None)
  Receive Date: 20050706
  Receipt Date: 20050629
  Transmission Date: 20060218
  Serious: Yes (Other)
  Sender: FDA-Public Use
  Company Number: PHBS2005CN09312

PATIENT
  Age: 64 Year
  Sex: Male

DRUGS (1)
  1. LIORESAL [Suspect]
     Dosage: 120 TO 160 MG/DAY
     Route: 048
     Dates: start: 19970101

REACTIONS (1)
  - GLAUCOMA [None]
